FAERS Safety Report 25751874 (Version 1)
Quarter: 2025Q3

REPORT INFORMATION
  Report Type: Spontaneous
  Country: EU (occurrence: EU)
  Receive Date: 20250902
  Receipt Date: 20250902
  Transmission Date: 20251021
  Serious: Yes (Life-Threatening, Hospitalization, Other)
  Sender: MYLAN
  Company Number: EU-BBM-DE-BBM-202502418

PATIENT
  Age: 64 Year
  Sex: Male

DRUGS (9)
  1. ROCURONIUM [Suspect]
     Active Substance: ROCURONIUM BROMIDE
     Indication: General anaesthesia
  2. SUGAMMADEX [Suspect]
     Active Substance: SUGAMMADEX
     Indication: Anaphylactic shock
  3. FENTANYL [Concomitant]
     Active Substance: FENTANYL
     Indication: General anaesthesia
  4. LIDOCAINE [Concomitant]
     Active Substance: LIDOCAINE
     Indication: General anaesthesia
  5. PROPOFOL [Concomitant]
     Active Substance: PROPOFOL
     Indication: General anaesthesia
  6. EPINEPHRINE [Concomitant]
     Active Substance: EPINEPHRINE
     Indication: Obstruction
  7. PREDNISOLONE [Concomitant]
     Active Substance: PREDNISOLONE
     Indication: Product used for unknown indication
  8. CIMETIDINE [Concomitant]
     Active Substance: CIMETIDINE
  9. CLEMASTINE [Concomitant]
     Active Substance: CLEMASTINE

REACTIONS (3)
  - Anaphylactic shock [Recovered/Resolved]
  - Anaphylactic reaction [Recovered/Resolved]
  - Product use in unapproved indication [Unknown]

NARRATIVE: CASE EVENT DATE: 20241028
